FAERS Safety Report 9680944 (Version 1)
Quarter: 2013Q4

REPORT INFORMATION
  Report Type: Spontaneous
  Country: US (occurrence: US)
  Receive Date: 20131111
  Receipt Date: 20131111
  Transmission Date: 20140711
  Serious: Yes (Hospitalization)
  Sender: FDA-Public Use
  Company Number: US-MERCK-1311USA002913

PATIENT
  Age: 9 Year
  Sex: Male

DRUGS (1)
  1. NOXAFIL [Suspect]
     Indication: FUNGAL INFECTION
     Dosage: 200 MG, QID
     Route: 048
     Dates: start: 20131007

REACTIONS (1)
  - Neutropenia [Unknown]
